FAERS Safety Report 7226614-1 (Version None)
Quarter: 2011Q1

REPORT INFORMATION
  Report Type: 
  Country: None (occurrence: None)
  Receive Date: 20110107
  Receipt Date: 20110107
  Transmission Date: 20110831
  Serious: No
  Sender: FDA-Public Use
  Company Number: None

PATIENT
  Sex: Male
  Weight: 113.9 kg

DRUGS (4)
  1. CARBOPLATIN [Suspect]
     Dosage: 767 MG
     Dates: end: 20101226
  2. PACLITAXEL [Suspect]
     Dosage: 464 MG
     Dates: end: 20101206
  3. COMBIVENT [Concomitant]
  4. PROMETHAZINE-CODEINE COUGH SYRUP [Concomitant]

REACTIONS (6)
  - HYPOMAGNESAEMIA [None]
  - ELECTROLYTE IMBALANCE [None]
  - ASTHMA [None]
  - CONDITION AGGRAVATED [None]
  - TREATMENT NONCOMPLIANCE [None]
  - HYPOKALAEMIA [None]
